FAERS Safety Report 9984774 (Version 1)
Quarter: 2014Q1

REPORT INFORMATION
  Report Type: Report from Study
  Country: US (occurrence: US)
  Receive Date: 20140307
  Receipt Date: 20140307
  Transmission Date: 20141002
  Serious: No
  Sender: FDA-Public Use
  Company Number: US-ABBVIE-13P-163-1183896-00

PATIENT
  Age: 52 Year
  Sex: Female

DRUGS (11)
  1. HUMIRA [Suspect]
     Indication: RHEUMATOID ARTHRITIS
     Dates: start: 20131109, end: 20131109
  2. HUMIRA [Suspect]
     Dates: start: 20131123, end: 20131123
  3. HUMIRA [Suspect]
     Dosage: PEN MISFIRE
     Dates: start: 20131212, end: 20131212
  4. HUMIRA [Suspect]
     Dates: start: 20131220
  5. FLEXERIL [Concomitant]
     Indication: MUSCULOSKELETAL STIFFNESS
  6. KLONOPIN [Concomitant]
     Indication: ANXIETY
     Dosage: 0.5 TO 1 MG TABLET
  7. VITAMIN B12 [Concomitant]
     Indication: PRODUCT USED FOR UNKNOWN INDICATION
  8. EFFEXOR [Concomitant]
     Indication: DEPRESSION
  9. DERMACORT [Concomitant]
     Indication: PSORIASIS
  10. DERMA-SMOOTHE OIL [Concomitant]
     Indication: HAIR DISORDER
  11. DERMA-SMOOTHE OIL [Concomitant]
     Indication: ARTHROPATHY

REACTIONS (9)
  - Drug dose omission [Not Recovered/Not Resolved]
  - Incorrect dose administered [Unknown]
  - Device malfunction [Unknown]
  - Gait disturbance [Recovering/Resolving]
  - Injection site coldness [Recovered/Resolved]
  - Musculoskeletal pain [Not Recovered/Not Resolved]
  - Injection site pain [Not Recovered/Not Resolved]
  - Pain in extremity [Not Recovered/Not Resolved]
  - Pain in extremity [Not Recovered/Not Resolved]
